FAERS Safety Report 16457944 (Version 1)
Quarter: 2019Q2

REPORT INFORMATION
  Report Type: Spontaneous
  Country: MY (occurrence: MY)
  Receive Date: 20190620
  Receipt Date: 20190620
  Transmission Date: 20190711
  Serious: Yes (Death)
  Sender: FDA-Public Use
  Company Number: MY-ROCHE-2339420

PATIENT
  Age: 49 Year
  Sex: Male

DRUGS (1)
  1. MABTHERA [Suspect]
     Active Substance: RITUXIMAB
     Indication: BURKITT^S LYMPHOMA
     Dosage: VIALS 10MG/ML CONCENTRATE FOR SOLUTION FOR INFUSION
     Route: 042

REACTIONS (2)
  - Tachypnoea [Fatal]
  - Neutropenic sepsis [Fatal]
